FAERS Safety Report 5024239-X (Version None)
Quarter: 2006Q2

REPORT INFORMATION
  Report Type: 
  Country: None (occurrence: None)
  Receive Date: 20060613
  Receipt Date: 20060607
  Transmission Date: 20061013
  Serious: Yes (Death)
  Sender: FDA-Public Use
  Company Number: PHNU2006SI02210

PATIENT
  Age: 80 Year
  Sex: Female

DRUGS (6)
  1. STALEVO 100 [Suspect]
     Indication: PARKINSON'S DISEASE
     Dosage: 450 MG/DAY
     Route: 048
     Dates: start: 20060514, end: 20060530
  2. NAKOM [Concomitant]
     Dosage: 250 MG/DAY
     Dates: end: 20060530
  3. CYMBALTA [Concomitant]
     Dosage: 60 MG/DAY
     Dates: start: 20060522, end: 20060530
  4. LYRICA [Concomitant]
     Dosage: 600 MG/DAY
     Dates: start: 20060514, end: 20060530
  5. LEXAURIN [Concomitant]
     Dosage: 4.5 MG/DAY
     Dates: end: 20060530
  6. ZOLPIDEM TARTRATE [Concomitant]
     Dosage: 10 MG/DAY
     Dates: end: 20060530

REACTIONS (1)
  - COMPLETED SUICIDE [None]
